FAERS Safety Report 5564475-7 (Version None)
Quarter: 2007Q4

REPORT INFORMATION
  Report Type: 
  Country: None (occurrence: None)
  Receive Date: 20071218
  Receipt Date: 20071212
  Transmission Date: 20080405
  Serious: Yes (Hospitalization)
  Sender: FDA-Public Use
  Company Number: GB-JNJFOC-20071109894

PATIENT
  Sex: Female
  Weight: 62.5 kg

DRUGS (2)
  1. TRABCETEDIN [Suspect]
     Indication: OVARIAN CANCER
     Route: 042
  2. DOXORUBICIN HCL [Suspect]
     Indication: OVARIAN CANCER
     Route: 042

REACTIONS (2)
  - CATHETER RELATED INFECTION [None]
  - PYREXIA [None]
